FAERS Safety Report 4865497-1 (Version None)
Quarter: 2005Q4

REPORT INFORMATION
  Report Type: 
  Country: None (occurrence: None)
  Receive Date: 20051219
  Receipt Date: 20051208
  Transmission Date: 20060501
  Serious: Yes (Life-Threatening)
  Sender: FDA-Public Use
  Company Number: 216601

PATIENT
  Age: 40 Year
  Sex: Male
  Weight: 74 kg

DRUGS (5)
  1. RITUXAN [Suspect]
     Indication: CHRONIC LYMPHOCYTIC LEUKAEMIA
     Dosage: 42 MG, INTRAVENOUS
     Route: 042
     Dates: start: 20050607, end: 20050607
  2. ALLOPURINOL [Concomitant]
  3. COTRIM [Concomitant]
  4. SOLU-CORTEF [Concomitant]
  5. CHLOR-TRIMETON (CHLORPHENIRAMINE MALEATE) [Concomitant]

REACTIONS (12)
  - ANAPHYLACTIC SHOCK [None]
  - BLOOD CREATININE INCREASED [None]
  - BLOOD PRESSURE DECREASED [None]
  - DEPRESSED LEVEL OF CONSCIOUSNESS [None]
  - DRUG HYPERSENSITIVITY [None]
  - DYSPNOEA [None]
  - INFUSION RELATED REACTION [None]
  - OXYGEN SATURATION DECREASED [None]
  - PYREXIA [None]
  - RECTAL TENESMUS [None]
  - RENAL DISORDER [None]
  - URINE OUTPUT DECREASED [None]
